FAERS Safety Report 23029437 (Version 1)
Quarter: 2023Q4

REPORT INFORMATION
  Report Type: Spontaneous
  Country: CN (occurrence: CN)
  Receive Date: 20231004
  Receipt Date: 20231004
  Transmission Date: 20240110
  Serious: Yes (Other)
  Sender: FDA-Public Use
  Company Number: CN-PFIZER INC-PV202300163697

PATIENT
  Age: 68 Year
  Sex: Male
  Weight: 59 kg

DRUGS (9)
  1. EPIRUBICIN HYDROCHLORIDE [Suspect]
     Active Substance: EPIRUBICIN HYDROCHLORIDE
     Indication: Hepatic cancer
     Dosage: 60 MG, 1X/DAY
     Route: 013
     Dates: start: 20230908, end: 20230908
  2. OXALIPLATIN [Suspect]
     Active Substance: OXALIPLATIN
     Indication: Hepatic cancer
     Dosage: 0.1 G, 1X/DAY
     Route: 013
     Dates: start: 20230908, end: 20230908
  3. SODIUM CHLORIDE [Suspect]
     Active Substance: SODIUM CHLORIDE
     Indication: Vehicle solution use
     Dosage: 100 ML, 1X/DAY
     Route: 013
     Dates: start: 20230908, end: 20230908
  4. SODIUM CHLORIDE [Concomitant]
     Active Substance: SODIUM CHLORIDE
     Indication: Vehicle solution use
     Dosage: 100 ML, 1X/DAY
     Dates: start: 20230908, end: 20230911
  5. SODIUM CHLORIDE [Concomitant]
     Active Substance: SODIUM CHLORIDE
     Dosage: 100 ML, 1X/DAY
     Route: 041
     Dates: start: 20230908, end: 20230909
  6. SODIUM CHLORIDE [Concomitant]
     Active Substance: SODIUM CHLORIDE
     Dosage: 100 ML, 1X/DAY
     Route: 041
     Dates: start: 20230908, end: 20230913
  7. FAMOTIDINE [Concomitant]
     Active Substance: FAMOTIDINE
     Indication: Prophylaxis
     Dosage: 20 MG (+ 0.9% SODIUM CHLORIDE INJECTION 100ML), 1X/DAY
     Route: 041
     Dates: start: 20230908, end: 20230911
  8. TROPISETRON HYDROCHLORIDE [Concomitant]
     Active Substance: TROPISETRON HYDROCHLORIDE
     Indication: Prophylaxis
     Dosage: 5 MG (+ 0.9% SODIUM CHLORIDE INJECTION 100ML), 1X/DAY
     Route: 041
     Dates: start: 20230908, end: 20230909
  9. GLUTATHIONE [Concomitant]
     Active Substance: GLUTATHIONE
     Indication: Prophylaxis
     Dosage: 1.2 G (+ 0.9% SODIUM CHLORIDE INJECTION 100ML), 1X/DAY
     Route: 041
     Dates: start: 20230908, end: 20230913

REACTIONS (1)
  - Hepatocellular injury [Recovering/Resolving]

NARRATIVE: CASE EVENT DATE: 20230910
